FAERS Safety Report 4846569-4 (Version None)
Quarter: 2005Q4

REPORT INFORMATION
  Report Type: 
  Country: None (occurrence: None)
  Receive Date: 20051202
  Receipt Date: 20051121
  Transmission Date: 20060501
  Serious: Yes (Other)
  Sender: FDA-Public Use
  Company Number: 2005112929

PATIENT
  Sex: Female

DRUGS (3)
  1. LIPITOR [Suspect]
     Indication: BLOOD CHOLESTEROL INCREASED
     Dosage: 40 MG (80 MG, 1 IN 1 D), ORAL
     Route: 048
     Dates: start: 19990101
  2. LISINOPRIL [Concomitant]
  3. TOPROL (METOPROLOL) [Concomitant]

REACTIONS (6)
  - ANGIOPLASTY [None]
  - ANKLE FRACTURE [None]
  - CARDIAC DISORDER [None]
  - ECONOMIC PROBLEM [None]
  - FALL [None]
  - POOR QUALITY DRUG ADMINISTERED [None]
